FAERS Safety Report 24391310 (Version 3)
Quarter: 2025Q2

REPORT INFORMATION
  Report Type: Report from Study
  Country: BR (occurrence: BR)
  Receive Date: 20241003
  Receipt Date: 20250415
  Transmission Date: 20250716
  Serious: No
  Sender: TAKEDA
  Company Number: BR-TAKEDA-2023TUS104357

PATIENT
  Age: 41 Year
  Sex: Female

DRUGS (2)
  1. VEDOLIZUMAB [Suspect]
     Active Substance: VEDOLIZUMAB
     Indication: Colitis ulcerative
  2. VEDOLIZUMAB [Suspect]
     Active Substance: VEDOLIZUMAB

REACTIONS (3)
  - No adverse event [Unknown]
  - Inappropriate schedule of product administration [Recovered/Resolved]
  - Product availability issue [Unknown]

NARRATIVE: CASE EVENT DATE: 20240820
